FAERS Safety Report 5869805-4 (Version None)
Quarter: 2008Q3

REPORT INFORMATION
  Report Type: 
  Country: None (occurrence: None)
  Receive Date: 20080904
  Receipt Date: 20080826
  Transmission Date: 20090109
  Serious: Yes (Other)
  Sender: FDA-Public Use
  Company Number: GB-AMGEN-US305210

PATIENT
  Sex: Male
  Weight: 36.4 kg

DRUGS (5)
  1. ENBREL [Suspect]
     Indication: JUVENILE ARTHRITIS
     Route: 058
     Dates: start: 20041001
  2. ENBREL [Suspect]
     Route: 058
     Dates: start: 20070216
  3. GLUCOSAMINE [Concomitant]
     Dosage: UNKNOWN
     Route: 048
     Dates: start: 20040101
  4. MULTI-VITAMINS [Concomitant]
     Dosage: UNKNOWN
     Route: 048
     Dates: start: 20040101
  5. FOLIC ACID [Concomitant]
     Route: 048
     Dates: start: 20030701

REACTIONS (2)
  - ARTHRITIS [None]
  - CONDITION AGGRAVATED [None]
